FAERS Safety Report 6395495-0 (Version None)
Quarter: 2009Q4

REPORT INFORMATION
  Report Type: 
  Country: None (occurrence: None)
  Receive Date: 20091009
  Receipt Date: 20091001
  Transmission Date: 20100525
  Serious: Yes (Other)
  Sender: FDA-Public Use
  Company Number: US-BAYER-200935146NA

PATIENT

DRUGS (1)
  1. NEXAVAR [Suspect]
     Indication: THYROID CANCER
     Route: 048

REACTIONS (3)
  - PRECANCEROUS SKIN LESION [None]
  - RASH [None]
  - SQUAMOUS CELL CARCINOMA [None]
